FAERS Safety Report 17816728 (Version 1)
Quarter: 2020Q2

REPORT INFORMATION
  Report Type: Spontaneous
  Country: IT (occurrence: IT)
  Receive Date: 20200522
  Receipt Date: 20200522
  Transmission Date: 20200714
  Serious: Yes (Other)
  Sender: FDA-Public Use
  Company Number: IT-PFIZER INC-2020202244

PATIENT
  Age: 73 Year
  Sex: Male

DRUGS (4)
  1. PLAQUENIL [Suspect]
     Active Substance: HYDROXYCHLOROQUINE SULFATE
     Indication: COVID-19
     Dosage: 600 MG, 1X/DAY
     Route: 048
     Dates: start: 20200327, end: 20200330
  2. SIRTAP [Concomitant]
     Active Substance: CEFTRIAXONE SODIUM
     Dosage: 2 G
     Route: 042
     Dates: start: 20200327, end: 20200330
  3. INHIXA [Concomitant]
     Active Substance: ENOXAPARIN SODIUM
     Dosage: 40 MG
     Route: 058
     Dates: start: 20200327, end: 20200330
  4. ZITROMAX [Suspect]
     Active Substance: AZITHROMYCIN
     Dosage: 500 MG, 1X/DAY
     Route: 042
     Dates: start: 20200327, end: 20200330

REACTIONS (3)
  - Atrial flutter [Unknown]
  - Off label use [Unknown]
  - Product use issue [Unknown]

NARRATIVE: CASE EVENT DATE: 20200327
